FAERS Safety Report 19760389 (Version 2)
Quarter: 2021Q4

REPORT INFORMATION
  Report Type: Report from Study
  Country: US (occurrence: US)
  Receive Date: 20210830
  Receipt Date: 20211129
  Transmission Date: 20220303
  Serious: No
  Sender: FDA-Public Use
  Company Number: US-ACADIA PHARMACEUTICALS INC.-ACA-2021-PIM-002871

PATIENT
  Sex: Male

DRUGS (12)
  1. NUPLAZID [Suspect]
     Active Substance: PIMAVANSERIN TARTRATE
     Indication: Parkinson^s disease
     Dosage: 34 MILLIGRAM, QD
     Route: 048
     Dates: start: 20210609
  2. CARBIDOPA\LEVODOPA [Suspect]
     Active Substance: CARBIDOPA\LEVODOPA
     Dosage: UNK
  3. AMANTADINE [Concomitant]
     Active Substance: AMANTADINE
  4. LISINOPRIL [Concomitant]
     Active Substance: LISINOPRIL
  5. CITALOPRAM [Concomitant]
     Active Substance: CITALOPRAM HYDROBROMIDE
  6. LEVOTHYROXINE [Concomitant]
     Active Substance: LEVOTHYROXINE
  7. SINEMET [Concomitant]
     Active Substance: CARBIDOPA\LEVODOPA
     Dosage: 25-100 MG, 2 TAB AT 8PM DAILY
  8. SYNTHROID [Concomitant]
     Active Substance: LEVOTHYROXINE SODIUM
     Dosage: 25MCG DAILY
  9. PRINIVIL [Concomitant]
     Active Substance: LISINOPRIL
     Dosage: 10 MG DAILY
  10. ZESTRIL [Concomitant]
     Active Substance: LISINOPRIL
     Dosage: 10 MG DAILY
  11. EXELON [Concomitant]
     Active Substance: RIVASTIGMINE TARTRATE
     Dosage: 4.6MG/24 HR PT 24 (APPLY 1 PATCH TOPICALLY)
  12. RESTORIL [Concomitant]
     Active Substance: TEMAZEPAM
     Dosage: 15MG (1/2 TO 1 CAP EVERY NIGHT AT BEDTIME)
     Route: 048

REACTIONS (1)
  - Sleep disorder [Not Recovered/Not Resolved]
